FAERS Safety Report 19260177 (Version 2)
Quarter: 2021Q2

REPORT INFORMATION
  Report Type: Spontaneous
  Country: US (occurrence: US)
  Receive Date: 20210514
  Receipt Date: 20210602
  Transmission Date: 20210717
  Serious: Yes (Hospitalization)
  Sender: FDA-Public Use
  Company Number: US-ELI_LILLY_AND_COMPANY-US202105001845

PATIENT
  Sex: Female

DRUGS (3)
  1. TRULICITY [Suspect]
     Active Substance: DULAGLUTIDE
     Dosage: 4.5 MG, UNKNOWN
     Route: 065
  2. TRULICITY [Suspect]
     Active Substance: DULAGLUTIDE
     Indication: DIABETES MELLITUS
     Dosage: 4.5 MG, UNKNOWN
     Route: 065
  3. TRULICITY [Suspect]
     Active Substance: DULAGLUTIDE
     Indication: DIABETES MELLITUS
     Dosage: 4.5 MG, UNKNOWN
     Route: 065

REACTIONS (11)
  - Sciatica [Unknown]
  - Inappropriate schedule of product administration [Unknown]
  - Nerve injury [Unknown]
  - Spinal deformity [Unknown]
  - Headache [Unknown]
  - Visual impairment [Unknown]
  - Back disorder [Unknown]
  - Blood glucose increased [Unknown]
  - Pain [Unknown]
  - Drug hypersensitivity [Unknown]
  - Accidental overdose [Unknown]
